FAERS Safety Report 24575551 (Version 1)
Quarter: 2024Q4

REPORT INFORMATION
  Report Type: Spontaneous
  Country: US (occurrence: None)
  Receive Date: 20241101
  Receipt Date: 20241101
  Transmission Date: 20250114
  Serious: No
  Sender: Public
  Company Number: None

PATIENT
  Age: 60 Year
  Sex: Male

DRUGS (1)
  1. METHYLPREDNISOLONE [Suspect]
     Active Substance: METHYLPREDNISOLONE

REACTIONS (9)
  - Anxiety [None]
  - Chest pain [None]
  - Hyperhidrosis [None]
  - Gastric pH decreased [None]
  - Headache [None]
  - Back pain [None]
  - Gait disturbance [None]
  - Pain in jaw [None]
  - Hypersensitivity [None]

NARRATIVE: CASE EVENT DATE: 20240626
